FAERS Safety Report 9506948 (Version 1)
Quarter: 2013Q3

REPORT INFORMATION
  Report Type: Report from Study
  Country: US (occurrence: US)
  Receive Date: 20130909
  Receipt Date: 20130909
  Transmission Date: 20140515
  Serious: Yes (Other)
  Sender: FDA-Public Use
  Company Number: US-ROCHE-1271469

PATIENT
  Age: 56 Year
  Sex: Female
  Weight: 62.65 kg

DRUGS (8)
  1. HERCEPTIN [Suspect]
     Indication: BREAST CANCER
     Route: 065
     Dates: start: 2011, end: 20120308
  2. DEXAMETHASONE [Concomitant]
     Dosage: TAKE 1 PO AS DIRECTED
     Route: 048
  3. KEPPRA [Concomitant]
     Dosage: TAKE 1 PO BID
     Route: 048
  4. METOPROLOL SUCCINATE [Concomitant]
     Dosage: TAKE 3 PO DAILY SUSTAINED RELEASE 24HR
     Route: 048
  5. ATIVAN [Concomitant]
     Dosage: TAKE 1 Q4H PRN NAUSEA
     Route: 048
  6. ENALAPRIL MALEATE [Concomitant]
     Dosage: TAKE 1 PO DAILY
     Route: 048
  7. LIPITOR [Concomitant]
     Dosage: TAKE 1 PO DAILY
     Route: 048
  8. METFORMIN HYDROCHLORIDE [Concomitant]
     Dosage: TAKE 1 PO DAILY
     Route: 048

REACTIONS (1)
  - Metastases to central nervous system [Not Recovered/Not Resolved]
